FAERS Safety Report 7680169-6 (Version None)
Quarter: 2011Q3

REPORT INFORMATION
  Report Type: 
  Country: None (occurrence: None)
  Receive Date: 20110812
  Receipt Date: 20110803
  Transmission Date: 20111222
  Serious: Yes (Hospitalization, Other)
  Sender: FDA-Public Use
  Company Number: US-BAYER-2010-002122

PATIENT
  Age: 25 Year
  Sex: Female
  Weight: 141 kg

DRUGS (6)
  1. SYNTHROID [Concomitant]
  2. YASMIN [Suspect]
     Indication: CONTRACEPTION
     Dosage: UNK
     Route: 048
     Dates: start: 20060901, end: 20071001
  3. GLUCOPHAGE [Concomitant]
  4. BUSPAR [Concomitant]
  5. SKELAXIN [Concomitant]
  6. LORTAB [Concomitant]

REACTIONS (3)
  - CHOLECYSTITIS CHRONIC [None]
  - CHOLELITHIASIS [None]
  - PAIN [None]
